FAERS Safety Report 9157462 (Version 1)
Quarter: 2013Q1

REPORT INFORMATION
  Report Type: Spontaneous
  Country: US (occurrence: US)
  Receive Date: 20130312
  Receipt Date: 20130312
  Transmission Date: 20140127
  Serious: Yes (Hospitalization, Other)
  Sender: FDA-Public Use
  Company Number: US-PFIZER INC-2013079302

PATIENT
  Age: 33 Year
  Sex: Female
  Weight: 85 kg

DRUGS (5)
  1. LO/OVRAL-28 [Suspect]
     Indication: CONTRACEPTION
     Dosage: 1 DF, 1X/DAY
     Dates: start: 2008, end: 201008
  2. LAMICTAL [Concomitant]
     Indication: BIPOLAR DISORDER
     Dosage: UNK
  3. GEODON [Concomitant]
     Indication: BIPOLAR DISORDER
     Dosage: UNK
  4. TOPAMAX [Concomitant]
     Indication: BIPOLAR DISORDER
     Dosage: UNK
  5. SYNTHROID [Concomitant]
     Indication: HYPOTHYROIDISM
     Dosage: UNK

REACTIONS (2)
  - Deep vein thrombosis [Not Recovered/Not Resolved]
  - Vascular calcification [Not Recovered/Not Resolved]
